FAERS Safety Report 13966944 (Version 1)
Quarter: 2017Q3

REPORT INFORMATION
  Report Type: Spontaneous
  Country: CH (occurrence: CH)
  Receive Date: 20170914
  Receipt Date: 20170914
  Transmission Date: 20171128
  Serious: Yes (Other)
  Sender: FDA-Public Use
  Company Number: CH-ROCHE-1921369

PATIENT
  Age: 3 Day
  Sex: Male

DRUGS (4)
  1. ALTEPLASE. [Suspect]
     Active Substance: ALTEPLASE
     Indication: THROMBOSIS
     Dosage: LOADING DOSE OVER 20 MINUTES
     Route: 042
  2. HEPARIN [Concomitant]
     Active Substance: HEPARIN SODIUM
     Dosage: OVER AN HOUR
     Route: 065
  3. HEPARIN [Concomitant]
     Active Substance: HEPARIN SODIUM
     Dosage: OVER AN HOUR
     Route: 065
  4. ALTEPLASE. [Suspect]
     Active Substance: ALTEPLASE
     Dosage: 0.3 MH/KG/HOUR
     Route: 042

REACTIONS (3)
  - Thalamus haemorrhage [Unknown]
  - Intraventricular haemorrhage [Unknown]
  - Haematuria [Unknown]
